FAERS Safety Report 11223428 (Version 5)
Quarter: 2016Q1

REPORT INFORMATION
  Report Type: Report from Study
  Country: US (occurrence: US)
  Receive Date: 20150628
  Receipt Date: 20160331
  Transmission Date: 20160525
  Serious: Yes (Hospitalization, Other)
  Sender: FDA-Public Use
  Company Number: US-AMGEN-USASP2015061337

PATIENT
  Age: 68 Year
  Sex: Female

DRUGS (2)
  1. ENBREL [Suspect]
     Active Substance: ETANERCEPT
     Indication: PSORIASIS
     Dosage: UNK
     Route: 065
     Dates: start: 20151230
  2. ENBREL [Suspect]
     Active Substance: ETANERCEPT
     Indication: PSORIATIC ARTHROPATHY
     Dosage: 50 MG, QWK
     Route: 065

REACTIONS (16)
  - Knee arthroplasty [Not Recovered/Not Resolved]
  - Pancreatitis [Unknown]
  - Nephrolithiasis [Recovered/Resolved]
  - Cholelithiasis [Unknown]
  - Back pain [Not Recovered/Not Resolved]
  - Tremor [Unknown]
  - Hospitalisation [Unknown]
  - Hip arthroplasty [Not Recovered/Not Resolved]
  - Arthralgia [Unknown]
  - Cataract [Unknown]
  - Cholecystitis [Unknown]
  - Psoriasis [Not Recovered/Not Resolved]
  - Arthropathy [Unknown]
  - Injection site pain [Unknown]
  - Drug administration error [Unknown]
  - Gait disturbance [Unknown]

NARRATIVE: CASE EVENT DATE: 2015
